FAERS Safety Report 6246017-6 (Version None)
Quarter: 2009Q2

REPORT INFORMATION
  Report Type: 
  Country: None (occurrence: None)
  Receive Date: 20090626
  Receipt Date: 20081106
  Transmission Date: 20091009
  Serious: No
  Sender: FDA-Public Use
  Company Number: A0755401A

PATIENT
  Age: 60 Year
  Sex: Female

DRUGS (13)
  1. IMITREX [Suspect]
     Indication: MIGRAINE
     Dosage: 100MG VARIABLE DOSE
     Route: 048
  2. IMITREX [Suspect]
     Dosage: 20MG VARIABLE DOSE
     Route: 045
  3. IMITREX [Suspect]
     Dosage: 6MG AS REQUIRED
     Route: 058
     Dates: end: 20080101
  4. TOPAMAX [Concomitant]
  5. EFFEXOR [Concomitant]
  6. ADDERALL 10 [Concomitant]
  7. KLONOPIN [Concomitant]
  8. PROVIGIL [Concomitant]
  9. XYREM [Concomitant]
  10. MELATONIN [Concomitant]
  11. FOSAMAX [Concomitant]
  12. VITAMIN D [Concomitant]
  13. CALCIUM [Concomitant]

REACTIONS (2)
  - DRUG INEFFECTIVE [None]
  - FATIGUE [None]
